FAERS Safety Report 15601359 (Version 2)
Quarter: 2018Q4

REPORT INFORMATION
  Report Type: Report from Study
  Country: JP (occurrence: JP)
  Receive Date: 20181109
  Receipt Date: 20181116
  Transmission Date: 20190205
  Serious: Yes (Hospitalization)
  Sender: FDA-Public Use
  Company Number: JP-AMGEN-JPNCT2018158079

PATIENT
  Age: 85 Year
  Sex: Male

DRUGS (19)
  1. ARTIST [Concomitant]
     Active Substance: CARVEDILOL
     Indication: HYPERTENSION
     Dosage: 5 MG, AFTER BREAKFAST AND DINNER
     Route: 048
  2. DARBEPOETIN ALFA [Suspect]
     Active Substance: DARBEPOETIN ALFA
     Indication: NEPHROGENIC ANAEMIA
     Dosage: 15-180 MUG, Q2WK
     Route: 065
     Dates: start: 20180608
  3. DARBEPOETIN ALFA [Suspect]
     Active Substance: DARBEPOETIN ALFA
     Dosage: 120 MUG, Q2WK
     Route: 065
     Dates: start: 20181012, end: 20181026
  4. TAMSULOSIN [Concomitant]
     Active Substance: TAMSULOSIN
     Indication: BENIGN PROSTATIC HYPERPLASIA
     Dosage: 0.2 MG, QD, AFTER DINNER
     Route: 048
     Dates: end: 20181031
  5. MOHRUS [Concomitant]
     Active Substance: KETOPROFEN
     Indication: LUMBAR SPINAL STENOSIS
     Dosage: 3 DF, UNK
     Dates: end: 20181101
  6. LUPRAC [Concomitant]
     Active Substance: TORSEMIDE
     Indication: CHRONIC KIDNEY DISEASE
     Dosage: 4 MG, QD, AFTER BREAKFAST
     Route: 048
  7. CILOSTAZOL. [Concomitant]
     Active Substance: CILOSTAZOL
     Indication: PERIPHERAL ARTERY STENOSIS
     Dosage: 200 MG, AFTER BREAKFAST AND DINNER
     Route: 048
     Dates: end: 20181101
  8. DARBEPOETIN ALFA [Suspect]
     Active Substance: DARBEPOETIN ALFA
     Dosage: 180 MUG, UNK
     Route: 065
     Dates: start: 20180903, end: 20180903
  9. DARBEPOETIN ALFA [Suspect]
     Active Substance: DARBEPOETIN ALFA
     Dosage: 180 MUG, UNK
     Route: 065
     Dates: start: 20180914, end: 20180914
  10. DIART [Concomitant]
     Active Substance: AZOSEMIDE
     Indication: CHRONIC KIDNEY DISEASE
     Dosage: 60 MG, QD, AFTER BREAKFAST
     Route: 048
  11. BAYASPIRIN [Concomitant]
     Active Substance: ASPIRIN
     Indication: MYOCARDIAL INFARCTION
     Dosage: 100 MG, AFTER BREAKFAST
     Route: 048
     Dates: end: 20181101
  12. DARBEPOETIN ALFA [Suspect]
     Active Substance: DARBEPOETIN ALFA
     Dosage: 120 MUG, UNK
     Route: 065
     Dates: start: 20181001, end: 20181001
  13. SODIUM BICARBONATE. [Concomitant]
     Active Substance: SODIUM BICARBONATE
     Indication: CHRONIC KIDNEY DISEASE
     Dosage: 2 G, AFTER BREAKFAST AND DINNER
     Route: 048
  14. RABEPRAZOLE [Concomitant]
     Active Substance: RABEPRAZOLE
     Indication: PROPHYLAXIS AGAINST GASTROINTESTINAL ULCER
     Dosage: 10 MG, AFTER BREAKFAST
     Route: 048
     Dates: end: 20181031
  15. URIADEC [Concomitant]
     Active Substance: TOPIROXOSTAT
     Indication: CHRONIC KIDNEY DISEASE
     Dosage: 40 MG, AFTER BREAKFAST AND DINNER
     Route: 048
     Dates: end: 20181101
  16. NICORANDIL [Concomitant]
     Active Substance: NICORANDIL
     Indication: MYOCARDIAL INFARCTION
     Dosage: 15 MG, AFTER BREAKFAST, LUNCH AND DINNER
     Route: 048
  17. FUROSEMIDE. [Concomitant]
     Active Substance: FUROSEMIDE
     Indication: CHRONIC KIDNEY DISEASE
     Dosage: 40 MG, BID, AFTER BREAKFAST AND DINNER
     Route: 048
  18. LYRICA [Concomitant]
     Active Substance: PREGABALIN
     Indication: LUMBAR SPINAL STENOSIS
     Dosage: 50 MG, QD, AFTER DINNER
     Route: 048
  19. NIFEDIPINE. [Concomitant]
     Active Substance: NIFEDIPINE
     Indication: HYPERTENSION
     Dosage: 40 MG, AFTER BREAKFAST AND DINNER
     Route: 048
     Dates: end: 20181101

REACTIONS (1)
  - Cardiac failure acute [Not Recovered/Not Resolved]

NARRATIVE: CASE EVENT DATE: 20181101
